FAERS Safety Report 9969613 (Version 1)
Quarter: 2014Q1

REPORT INFORMATION
  Report Type: Spontaneous
  Country: US (occurrence: None)
  Receive Date: 20140304
  Receipt Date: 20140304
  Transmission Date: 20141002
  Serious: Yes (Hospitalization)
  Sender: FDA-Public Use
  Company Number: 2014P1001538

PATIENT
  Age: 45 Year
  Sex: Female

DRUGS (4)
  1. OXYCODONE [Suspect]
     Indication: BACK PAIN
  2. OXYCONTIN [Suspect]
     Indication: BACK PAIN
  3. FLUCONAZOLE [Suspect]
     Indication: ORAL CANDIDIASIS
  4. UNSPECIFIED STEROIDS [Concomitant]

REACTIONS (7)
  - Lethargy [None]
  - Dizziness [None]
  - Loss of consciousness [None]
  - Asthenia [None]
  - Tachycardia [None]
  - Hypotension [None]
  - Hypoxia [None]
